FAERS Safety Report 8822076 (Version 2)
Quarter: 2012Q4

REPORT INFORMATION
  Report Type: 
  Country: CH (occurrence: CH)
  Receive Date: 20121003
  Receipt Date: 20121010
  Transmission Date: 20130627
  Serious: Yes (Death)
  Sender: FDA-Public Use
  Company Number: CH-AMGEN-CHESP2012061529

PATIENT
  Age: 83 Year
  Sex: Female
  Weight: 60 kg

DRUGS (4)
  1. NEUPOGEN [Suspect]
     Indication: AGRANULOCYTOSIS
     Dosage: UNK UNK, 3 times/wk
     Route: 058
     Dates: start: 20120608, end: 20120912
  2. NEUPOGEN [Suspect]
     Indication: LEUKOPENIA
  3. NEUPOGEN [Suspect]
     Indication: NEUTROPENIA
  4. RECORMON                           /00928303/ [Concomitant]
     Indication: APLASTIC ANAEMIA
     Dosage: 30000 IU, qwk
     Route: 058
     Dates: start: 201207

REACTIONS (1)
  - Bone marrow failure [Fatal]
